FAERS Safety Report 6719371-6 (Version None)
Quarter: 2010Q2

REPORT INFORMATION
  Report Type: 
  Country: None (occurrence: None)
  Receive Date: 20100511
  Receipt Date: 20100507
  Transmission Date: 20101027
  Serious: Yes (Other)
  Sender: FDA-Public Use
  Company Number: US-BRISTOL-MYERS SQUIBB COMPANY-15010473

PATIENT
  Age: 53 Hour
  Sex: Male
  Weight: 72 kg

DRUGS (10)
  1. REYATAZ [Suspect]
     Indication: HIV INFECTION
     Route: 048
     Dates: start: 20080923
  2. EPZICOM [Suspect]
     Indication: HIV INFECTION
     Route: 048
     Dates: start: 20080923
  3. EPIVIR [Concomitant]
     Dosage: 1 DF=1 UNITS NOT SPECIFIED
     Route: 048
     Dates: start: 20080923
  4. ZIAGEN [Concomitant]
     Dosage: 2DF=2 TABS ZIAGEN 300MG TABS
     Route: 048
  5. TESTOSTERONE CYPIONATE [Concomitant]
     Dosage: TESTOSTERONE CYPIONATE 200MG/ML
     Route: 030
  6. ASPIRIN [Concomitant]
     Route: 048
  7. LOVAZA [Concomitant]
     Dosage: OMEGA 3 CAPS
     Route: 048
  8. VIAGRA [Concomitant]
     Dosage: VIAGRA TABS 100MG,PRN
  9. CYMBALTA [Concomitant]
     Dosage: 1DF=1 UNITS NOT SPECIFIED CYMBALTA 30MG CPEP
     Route: 048
  10. PNEUMOVAX 23 [Concomitant]
     Dosage: PNEUMOVAX 25 INJ
     Route: 030

REACTIONS (2)
  - NEPHROLITHIASIS [None]
  - RENAL TUBULAR NECROSIS [None]
